FAERS Safety Report 9698765 (Version 1)
Quarter: 2013Q4

REPORT INFORMATION
  Report Type: Spontaneous
  Country: NL (occurrence: NL)
  Receive Date: 20131120
  Receipt Date: 20131120
  Transmission Date: 20140711
  Serious: Yes (Hospitalization)
  Sender: FDA-Public Use
  Company Number: NL-ASTRAZENECA-2013SE83450

PATIENT
  Age: 60 Year
  Sex: Female

DRUGS (17)
  1. OMEPRAZOL [Suspect]
     Indication: PRODUCT USED FOR UNKNOWN INDICATION
     Route: 048
  2. SPIRIVA [Concomitant]
     Route: 055
  3. LOPERAMIDE [Concomitant]
     Route: 048
  4. ISORDIL [Concomitant]
     Route: 060
  5. RIVOTRIL [Concomitant]
     Route: 048
  6. PARACETAMOL [Concomitant]
     Route: 065
  7. BERODUAL [Concomitant]
     Route: 055
  8. SYMBICORT TURBUHALER [Concomitant]
     Dosage: 400/12MCG, 2 DF, TWO TIMES A DAY
     Route: 055
  9. MERCAPTOPURINE [Concomitant]
     Route: 048
  10. DIAZEPAM [Concomitant]
     Route: 048
  11. IMURAN [Concomitant]
  12. ENTOCORT [Concomitant]
     Dates: start: 200211
  13. DEXA [Concomitant]
     Indication: OSTEOPOROSIS
     Dates: start: 2004
  14. PREDNISOLON [Concomitant]
     Route: 042
     Dates: start: 2004
  15. METHOTREXATE [Concomitant]
     Dates: start: 200601, end: 200604
  16. REMICADE [Concomitant]
  17. HUMIRA [Concomitant]
     Dates: start: 200802

REACTIONS (4)
  - Hypokalaemia [Recovered/Resolved]
  - Hypocalcaemia [Recovered/Resolved]
  - Hypophosphataemia [Recovered/Resolved]
  - Hypomagnesaemia [Recovered/Resolved]
